FAERS Safety Report 24964785 (Version 1)
Quarter: 2025Q1

REPORT INFORMATION
  Report Type: Spontaneous
  Country: GB (occurrence: GB)
  Receive Date: 20250213
  Receipt Date: 20250213
  Transmission Date: 20250408
  Serious: Yes (Other)
  Sender: MYLAN
  Company Number: GB-MYLANLABS-2025M1004606

PATIENT
  Sex: Male

DRUGS (1)
  1. CLOZARIL [Suspect]
     Active Substance: CLOZAPINE
     Indication: Schizophrenia
     Dosage: UNK, BID (100 MG MORNING, 500 MG NIGHT)
     Route: 048
     Dates: start: 20080916

REACTIONS (6)
  - Thrombocytopenia [Unknown]
  - Electrocardiogram QT prolonged [Unknown]
  - Malaise [Unknown]
  - Influenza [Unknown]
  - Lymphocyte count decreased [Unknown]
  - C-reactive protein increased [Unknown]
